FAERS Safety Report 23513414 (Version 4)
Quarter: 2024Q2

REPORT INFORMATION
  Report Type: Spontaneous
  Country: IR (occurrence: IR)
  Receive Date: 20240212
  Receipt Date: 20240401
  Transmission Date: 20240716
  Serious: Yes (Other)
  Sender: FDA-Public Use
  Company Number: IR-002147023-NVSC2024IR020360

PATIENT
  Sex: Male

DRUGS (3)
  1. RITALIN [Suspect]
     Active Substance: METHYLPHENIDATE HYDROCHLORIDE
     Indication: Attention deficit hyperactivity disorder
     Dosage: 10 MG (PAST 7 YEARS)
     Route: 048
  2. RITALIN [Suspect]
     Active Substance: METHYLPHENIDATE HYDROCHLORIDE
     Dosage: UNK
     Route: 065
     Dates: start: 2023
  3. RITALIN [Suspect]
     Active Substance: METHYLPHENIDATE HYDROCHLORIDE
     Dosage: UNK
     Route: 065
     Dates: start: 202401

REACTIONS (5)
  - Suicidal ideation [Unknown]
  - Depression [Unknown]
  - Anxiety [Unknown]
  - Product quality issue [Unknown]
  - Drug ineffective [Unknown]
